FAERS Safety Report 24899788 (Version 1)
Quarter: 2025Q1

REPORT INFORMATION
  Report Type: Spontaneous
  Country: US (occurrence: US)
  Receive Date: 20250129
  Receipt Date: 20250129
  Transmission Date: 20250408
  Serious: No
  Sender: BRISTOL-MYERS SQUIBB COMPANY
  Company Number: US-BRISTOL-MYERS SQUIBB COMPANY-2025-013851

PATIENT
  Age: 48 Year
  Sex: Female
  Weight: 76.65 kg

DRUGS (2)
  1. ORENCIA [Suspect]
     Active Substance: ABATACEPT
     Indication: Rheumatoid arthritis
     Route: 058
     Dates: start: 202407
  2. SULFASALAZINE [Concomitant]
     Active Substance: SULFASALAZINE
     Indication: Product used for unknown indication

REACTIONS (5)
  - Lymphadenitis [Recovered/Resolved]
  - Fatigue [Unknown]
  - Product dose omission in error [Unknown]
  - Product storage error [Unknown]
  - Illness [Unknown]

NARRATIVE: CASE EVENT DATE: 20241101
